FAERS Safety Report 9718247 (Version 1)
Quarter: 2013Q4

REPORT INFORMATION
  Report Type: Spontaneous
  Country: US (occurrence: US)
  Receive Date: 20131125
  Receipt Date: 20131125
  Transmission Date: 20140711
  Serious: No
  Sender: FDA-Public Use
  Company Number: US-VIVUS-2013V1000129

PATIENT
  Sex: Female

DRUGS (3)
  1. QSYMIA [Suspect]
     Indication: PRODUCT USED FOR UNKNOWN INDICATION
     Route: 048
     Dates: start: 20130212
  2. BIRTH CONTROL PATCH [Concomitant]
     Indication: CONTRACEPTION
     Route: 061
     Dates: start: 20130210
  3. BIRTH CONTROL PILLS [Concomitant]
     Indication: CONTRACEPTION
     Route: 048
     Dates: end: 20130202

REACTIONS (1)
  - Metrorrhagia [Not Recovered/Not Resolved]
